FAERS Safety Report 9815716 (Version 1)
Quarter: 2014Q1

REPORT INFORMATION
  Report Type: Spontaneous
  Country: IT (occurrence: None)
  Receive Date: 20140110
  Receipt Date: 20140110
  Transmission Date: 20141002
  Serious: Yes (Hospitalization, Other)
  Sender: FDA-Public Use
  Company Number: CL-545-2014

PATIENT
  Age: 46 Year
  Sex: Female

DRUGS (1)
  1. CIPROFLOXACIN [Suspect]
     Indication: URINARY TRACT INFECTION
     Dosage: 50MG, OD, ORAL
     Route: 048
     Dates: start: 20130321, end: 20130325

REACTIONS (4)
  - Skin reaction [None]
  - Eosinophilia [None]
  - Pulmonary eosinophilia [None]
  - Hypersensitivity [None]
